FAERS Safety Report 5803478-1 (Version None)
Quarter: 2008Q3

REPORT INFORMATION
  Report Type: 
  Country: None (occurrence: None)
  Receive Date: 20080708
  Receipt Date: 20080630
  Transmission Date: 20090109
  Serious: Yes (Other)
  Sender: FDA-Public Use
  Company Number: PHHY2008JP03209

PATIENT
  Sex: Male

DRUGS (8)
  1. ZOMETA [Suspect]
     Dosage: 4 MG DILUTED TO 100 ML ONCE A MONTH
     Route: 042
     Dates: start: 20061225, end: 20070521
  2. BONALON [Suspect]
     Dosage: 5 MG/DAY
     Route: 048
     Dates: start: 20060721, end: 20071215
  3. DECADRON [Suspect]
     Dosage: 0.5 MG/DAY
     Route: 048
     Dates: start: 20070601
  4. ESTRACYT [Concomitant]
     Dosage: 140 MG/DAY
     Route: 048
     Dates: start: 20061020
  5. ASPIRIN [Concomitant]
     Dosage: 100 MG/DAY
     Route: 048
     Dates: start: 20071020
  6. ASPARA-CA [Concomitant]
     Dosage: 1200 MG/DAY
     Route: 048
     Dates: start: 20070523
  7. FAMOTIDINE [Concomitant]
     Dosage: 20 MG/DAY
     Route: 048
     Dates: start: 20070619
  8. DOCETAXEL [Concomitant]
     Route: 042
     Dates: start: 20070326

REACTIONS (3)
  - HYPOCALCAEMIA [None]
  - OSTEOMYELITIS [None]
  - PAIN IN JAW [None]
